FAERS Safety Report 13466401 (Version 1)
Quarter: 2017Q2

REPORT INFORMATION
  Report Type: Spontaneous
  Country: US (occurrence: US)
  Receive Date: 20170421
  Receipt Date: 20170421
  Transmission Date: 20170830
  Serious: No
  Sender: FDA-Public Use
  Company Number: US-THROMBOGENICS NV-SPO-2017-2345

PATIENT
  Sex: Male

DRUGS (1)
  1. JETREA [Suspect]
     Active Substance: OCRIPLASMIN
     Indication: VITREOUS ADHESIONS
     Dosage: 0.125 MG, ONE TIME DOSE
     Route: 031

REACTIONS (4)
  - Metamorphopsia [Recovered/Resolved]
  - Vision blurred [Recovered/Resolved]
  - Drug ineffective [Not Recovered/Not Resolved]
  - Dyschromatopsia [Recovered/Resolved]
